FAERS Safety Report 6271347-1 (Version None)
Quarter: 2009Q3

REPORT INFORMATION
  Report Type: 
  Country: None (occurrence: None)
  Receive Date: 20090717
  Receipt Date: 20090709
  Transmission Date: 20100115
  Serious: Yes (Other)
  Sender: FDA-Public Use
  Company Number: AU-AMGEN-US356164

PATIENT
  Sex: Male

DRUGS (1)
  1. ENBREL [Suspect]
     Indication: ANKYLOSING SPONDYLITIS
     Dosage: 50MG WEEKLY
     Route: 058
     Dates: start: 20070101, end: 20090623

REACTIONS (3)
  - HERPES ZOSTER [None]
  - MALAISE [None]
  - NAUSEA [None]
